FAERS Safety Report 8818991 (Version 2)
Quarter: 2012Q4

REPORT INFORMATION
  Report Type: 
  Country: FR (occurrence: FR)
  Receive Date: 20121001
  Receipt Date: 20121009
  Transmission Date: 20130627
  Serious: Yes (Hospitalization)
  Sender: FDA-Public Use
  Company Number: FR-JNJFOC-20120910088

PATIENT
  Age: 71 None
  Sex: Male

DRUGS (6)
  1. HALDOL [Suspect]
     Indication: PRODUCT USED FOR UNKNOWN INDICATION
     Route: 048
     Dates: start: 20120425, end: 20120518
  2. HALDOL [Suspect]
     Indication: PRODUCT USED FOR UNKNOWN INDICATION
     Route: 042
     Dates: start: 20120501, end: 20120501
  3. TRANXENE [Suspect]
     Indication: PRODUCT USED FOR UNKNOWN INDICATION
     Route: 065
     Dates: start: 20120428, end: 20120501
  4. TRANXENE [Suspect]
     Indication: PRODUCT USED FOR UNKNOWN INDICATION
     Route: 065
     Dates: start: 20120508, end: 20120514
  5. TRANXENE [Suspect]
     Indication: PRODUCT USED FOR UNKNOWN INDICATION
     Route: 065
     Dates: start: 20120504
  6. ANTIFUNGALS FOR SYSTEMIC USE [Concomitant]
     Indication: FUNGAL INFECTION
     Route: 042

REACTIONS (3)
  - Mutism [Recovered/Resolved]
  - Incorrect route of drug administration [Recovered/Resolved]
  - Extrapyramidal disorder [Unknown]
